FAERS Safety Report 9827016 (Version 1)
Quarter: 2014Q1

REPORT INFORMATION
  Report Type: Spontaneous
  Country: US (occurrence: US)
  Receive Date: 20140117
  Receipt Date: 20140117
  Transmission Date: 20141002
  Serious: No
  Sender: FDA-Public Use
  Company Number: US-GLAXOSMITHKLINE-A1026474A

PATIENT
  Sex: Female

DRUGS (1)
  1. PROMACTA [Suspect]
     Indication: CHRONIC HEPATITIS C
     Dosage: 25MG UNKNOWN
     Route: 065

REACTIONS (14)
  - Oedema peripheral [Unknown]
  - Platelet count decreased [Unknown]
  - Chromaturia [Unknown]
  - Fatigue [Unknown]
  - Influenza like illness [Unknown]
  - Headache [Unknown]
  - Nausea [Unknown]
  - Dry mouth [Unknown]
  - Increased tendency to bruise [Unknown]
  - Pallor [Unknown]
  - Pruritus [Unknown]
  - Visual impairment [Unknown]
  - Dysgeusia [Unknown]
  - Abdominal pain [Unknown]
